FAERS Safety Report 4988398-7 (Version None)
Quarter: 2006Q2

REPORT INFORMATION
  Report Type: 
  Country: None (occurrence: None)
  Receive Date: 20060502
  Receipt Date: 20060224
  Transmission Date: 20061013
  Serious: Yes (Death, Other)
  Sender: FDA-Public Use
  Company Number: US-AVENTIS-200611868US

PATIENT
  Age: 68 Year
  Sex: Female

DRUGS (1)
  1. KETEK [Suspect]
     Dosage: DOSE: UNKNOWN

REACTIONS (2)
  - HEPATOCELLULAR DAMAGE [None]
  - HEPATOTOXICITY [None]
